FAERS Safety Report 14061098 (Version 1)
Quarter: 2017Q4

REPORT INFORMATION
  Report Type: Spontaneous
  Country: TW (occurrence: TW)
  Receive Date: 20171008
  Receipt Date: 20171008
  Transmission Date: 20180321
  Serious: Yes (Life-Threatening, Hospitalization, Other)
  Sender: FDA-Public Use
  Company Number: TW-ENDO PHARMACEUTICALS INC-2017-005235

PATIENT
  Age: 25 Year
  Sex: Female

DRUGS (1)
  1. KETALAR [Suspect]
     Active Substance: KETAMINE HYDROCHLORIDE
     Indication: SUBSTANCE USE
     Dosage: UNK UNK, UNKNOWN
     Route: 065

REACTIONS (11)
  - Hyperkalaemia [Unknown]
  - Urosepsis [Unknown]
  - Contracted bladder [Unknown]
  - Renal impairment [Recovered/Resolved]
  - Ureteric stenosis [Unknown]
  - Hydronephrosis [Recovering/Resolving]
  - Loss of consciousness [Recovered/Resolved]
  - Drug abuse [Unknown]
  - Ventricular fibrillation [Unknown]
  - Cardio-respiratory arrest [Unknown]
  - Urinary tract infection [Unknown]
